FAERS Safety Report 24538478 (Version 1)
Quarter: 2024Q4

REPORT INFORMATION
  Report Type: Spontaneous
  Country: US (occurrence: None)
  Receive Date: 20241023
  Receipt Date: 20241023
  Transmission Date: 20250114
  Serious: No
  Sender: BANNER
  Company Number: US-PTA-005816

PATIENT
  Sex: Female

DRUGS (1)
  1. NAPROXEN [Suspect]
     Active Substance: NAPROXEN
     Indication: Ovarian cyst
     Route: 048
     Dates: start: 20240930, end: 20240930

REACTIONS (2)
  - Maternal exposure during breast feeding [Unknown]
  - Product use in unapproved indication [Unknown]
